FAERS Safety Report 9135298 (Version 1)
Quarter: 2013Q1

REPORT INFORMATION
  Report Type: Spontaneous
  Country: US (occurrence: US)
  Receive Date: 20130304
  Receipt Date: 20130304
  Transmission Date: 20140127
  Serious: No
  Sender: FDA-Public Use
  Company Number: US-ALLERGAN-1213734US

PATIENT
  Sex: Female
  Weight: 70.3 kg

DRUGS (3)
  1. TAZORAC [Suspect]
     Indication: SKIN DISORDER
     Dosage: UNK, QHS
     Route: 061
     Dates: start: 201210
  2. RETIN A [Concomitant]
     Indication: SKIN DISORDER
     Dosage: UNK UNK, QPM
     Route: 061
  3. NEUTROGENA HEALTHY DEFENSE DAILY MOISTURIZER SPF30 WITH HELIOPLEX [Concomitant]
     Indication: DRY SKIN PROPHYLAXIS
     Dosage: UNK UNK, QAM
     Route: 061

REACTIONS (6)
  - Application site pain [Recovered/Resolved]
  - Skin fissures [Recovered/Resolved]
  - Skin irritation [Recovered/Resolved]
  - Erythema [Recovered/Resolved]
  - Skin exfoliation [Recovered/Resolved]
  - Skin exfoliation [Recovered/Resolved]
